FAERS Safety Report 7154176-6 (Version None)
Quarter: 2010Q4

REPORT INFORMATION
  Report Type: 
  Country: None (occurrence: None)
  Receive Date: 20101213
  Receipt Date: 20101201
  Transmission Date: 20110411
  Serious: Yes (Other)
  Sender: FDA-Public Use
  Company Number: US-ELI_LILLY_AND_COMPANY-US201012000411

PATIENT
  Sex: Male

DRUGS (1)
  1. HUMALOG [Suspect]
     Indication: DIABETES MELLITUS
     Dosage: 125 U, DAILY (1/D)
     Route: 058

REACTIONS (4)
  - BLOOD GLUCOSE INCREASED [None]
  - GALLBLADDER DISORDER [None]
  - RENAL FAILURE [None]
  - WEIGHT DECREASED [None]
